FAERS Safety Report 26060302 (Version 3)
Quarter: 2025Q4

REPORT INFORMATION
  Report Type: Report from Study
  Country: US (occurrence: US)
  Receive Date: 20251118
  Receipt Date: 20251201
  Transmission Date: 20260117
  Serious: Yes (Death)
  Sender: BAUSCH AND LOMB
  Company Number: US-BAUSCH-BH-2025-020661

PATIENT
  Age: 91 Year
  Sex: Male

DRUGS (1)
  1. XIFAXAN [Suspect]
     Active Substance: RIFAXIMIN
     Indication: Metabolic dysfunction-associated liver disease
     Route: 065

REACTIONS (2)
  - Metabolic dysfunction-associated liver disease [Fatal]
  - Condition aggravated [Fatal]
